FAERS Safety Report 6085065 (Version 4)
Quarter: 2012Q4

REPORT INFORMATION
  Report Type: 
  Country: GB (occurrence: GB)
  Receive Date: 20060719
  Receipt Date: 20121210
  Transmission Date: 20130627
  Serious: Yes (Hospitalization, Other)
  Sender: FDA-Public Use
  Company Number: GB-JNJFOC-20060702376

PATIENT
  Age: 36 Year
  Sex: Female

DRUGS (1)
  1. IBUPROFEN [Suspect]
     Indication: HEADACHE
     Dosage: intermittently over 16-days
     Route: 048

REACTIONS (22)
  - Drug reaction with eosinophilia and systemic symptoms [Recovering/Resolving]
  - Tubulointerstitial nephritis [Recovering/Resolving]
  - Hepatic function abnormal [Recovering/Resolving]
  - Multi-organ disorder [Recovering/Resolving]
  - Eosinophilia [Recovering/Resolving]
  - Rash generalised [Recovering/Resolving]
  - Alanine aminotransferase increased [Recovering/Resolving]
  - Blood alkaline phosphatase increased [Recovering/Resolving]
  - Blood creatine increased [Recovering/Resolving]
  - C-reactive protein increased [Recovering/Resolving]
  - Dermatitis exfoliative [Recovering/Resolving]
  - Face oedema [Recovering/Resolving]
  - Granuloma [Recovering/Resolving]
  - Lymphadenopathy [Recovering/Resolving]
  - Malaise [Recovering/Resolving]
  - Neutrophilia [Recovering/Resolving]
  - Pruritus [Recovering/Resolving]
  - Pyrexia [Unknown]
  - Rash maculo-papular [Recovering/Resolving]
  - Red blood cell sedimentation rate increased [Recovering/Resolving]
  - White blood cell count increased [Unknown]
  - Hypersensitivity [Recovering/Resolving]
